FAERS Safety Report 13621643 (Version 1)
Quarter: 2017Q2

REPORT INFORMATION
  Report Type: Spontaneous
  Country: US (occurrence: US)
  Receive Date: 20170607
  Receipt Date: 20170607
  Transmission Date: 20170830
  Serious: No
  Sender: FDA-Public Use
  Company Number: US-ROCHE-1423167

PATIENT
  Age: 70 Year
  Sex: Female

DRUGS (4)
  1. KLONOPIN [Suspect]
     Active Substance: CLONAZEPAM
     Indication: NEUROLOGICAL SYMPTOM
     Dosage: MAINTENANCE DOSE 1 1/2 MG A DAY WITH BLOOD PRESSURE MEDICATION
     Route: 048
  2. THYROID [Concomitant]
     Active Substance: LEVOTHYROXINE\LIOTHYRONINE
  3. KLONOPIN [Suspect]
     Active Substance: CLONAZEPAM
     Route: 048
     Dates: start: 2006
  4. TENORMIN [Concomitant]
     Active Substance: ATENOLOL
     Indication: BLOOD PRESSURE MEASUREMENT

REACTIONS (11)
  - Asthenia [Unknown]
  - Gait disturbance [Unknown]
  - Feeling abnormal [Not Recovered/Not Resolved]
  - Abdominal discomfort [Not Recovered/Not Resolved]
  - Abnormal dreams [Unknown]
  - Balance disorder [Unknown]
  - Feeling abnormal [Unknown]
  - Drug ineffective [Unknown]
  - Malaise [Unknown]
  - Dizziness [Unknown]
  - Somnolence [Unknown]

NARRATIVE: CASE EVENT DATE: 20140620
